FAERS Safety Report 19185718 (Version 3)
Quarter: 2021Q2

REPORT INFORMATION
  Report Type: Spontaneous
  Country: CH (occurrence: CH)
  Receive Date: 20210427
  Receipt Date: 20210512
  Transmission Date: 20210717
  Serious: Yes (Hospitalization, Other)
  Sender: FDA-Public Use
  Company Number: CH-PFIZER INC-2021427455

PATIENT
  Age: 87 Year
  Sex: Male

DRUGS (9)
  1. TORASEMIDE [Concomitant]
     Active Substance: TORSEMIDE
     Dosage: UNK
  2. AMLODIPINE [Concomitant]
     Active Substance: AMLODIPINE BESYLATE
     Dosage: UNK
  3. INSULIN [Concomitant]
     Active Substance: INSULIN NOS
     Dosage: UNK
  4. ATORVASTATIN [Concomitant]
     Active Substance: ATORVASTATIN
     Dosage: UNK
  5. SPIRONOLACTONE. [Suspect]
     Active Substance: SPIRONOLACTONE
     Indication: CARDIAC FAILURE CONGESTIVE
     Dosage: UNK
  6. ATENOLOL. [Concomitant]
     Active Substance: ATENOLOL
     Dosage: UNK
  7. SPIRONOLACTONE. [Suspect]
     Active Substance: SPIRONOLACTONE
     Indication: DIABETIC NEPHROPATHY
  8. SITAGLIPTIN [Concomitant]
     Active Substance: SITAGLIPTIN
     Dosage: UNK
  9. PERINDOPRIL [Suspect]
     Active Substance: PERINDOPRIL
     Dosage: UNK

REACTIONS (8)
  - Toxicity to various agents [Recovered/Resolved]
  - Stupor [Recovered/Resolved]
  - Electrocardiogram T wave peaked [Recovered/Resolved]
  - Bundle branch block right [Unknown]
  - Hyperkalaemia [Recovered/Resolved]
  - Bradycardia [Recovered/Resolved]
  - Off label use [Unknown]
  - Electrocardiogram QRS complex prolonged [Recovered/Resolved]
